FAERS Safety Report 10611654 (Version 2)
Quarter: 2015Q1

REPORT INFORMATION
  Report Type: Spontaneous
  Country: US (occurrence: US)
  Receive Date: 20141126
  Receipt Date: 20150112
  Transmission Date: 20150720
  Serious: No
  Sender: FDA-Public Use
  Company Number: US-PFIZER INC-2014323862

PATIENT
  Age: 77 Year
  Sex: Male

DRUGS (1)
  1. TIKOSYN [Suspect]
     Active Substance: DOFETILIDE
     Indication: ATRIAL FIBRILLATION
     Dosage: UNK, 5-6 DAYS AND HALF ON SUNDAY

REACTIONS (2)
  - Arrhythmia [Recovered/Resolved]
  - Nasopharyngitis [Recovered/Resolved]
